FAERS Safety Report 4979018-6 (Version None)
Quarter: 2006Q2

REPORT INFORMATION
  Report Type: 
  Country: None (occurrence: None)
  Receive Date: 20060421
  Receipt Date: 20060410
  Transmission Date: 20061013
  Serious: Yes (Other)
  Sender: FDA-Public Use
  Company Number: PHEH2006US04688

PATIENT
  Age: 55 Year
  Sex: Female

DRUGS (3)
  1. ZELNORM [Suspect]
     Indication: FLATULENCE
     Dosage: 3 MG, BID
     Route: 048
     Dates: start: 20060401, end: 20060406
  2. ASPIRIN [Concomitant]
  3. PREMARIN [Concomitant]

REACTIONS (2)
  - COMPLEX PARTIAL SEIZURES [None]
  - MOVEMENT DISORDER [None]
